FAERS Safety Report 8431373-0 (Version None)
Quarter: 2012Q2

REPORT INFORMATION
  Report Type: 
  Country: None (occurrence: None)
  Receive Date: 20120613
  Receipt Date: 20120611
  Transmission Date: 20120825
  Serious: No
  Sender: FDA-Public Use
  Company Number: US-PFIZER INC-2012140036

PATIENT
  Sex: Female
  Weight: 54.422 kg

DRUGS (8)
  1. KLONOPIN [Concomitant]
     Indication: SLEEP DISORDER
     Dosage: 0.5 MG, 1X/DAY
  2. TOPIRAMATE [Concomitant]
     Dosage: 75 MG, UNK FOR THIRD WEEK
  3. TOPIRAMATE [Concomitant]
     Dosage: 100 MG, UNK FOR FOURTH WEEK
  4. TOPIRAMATE [Concomitant]
     Dosage: 50 MG, UNK FOR SECOND WEEK
  5. RELPAX [Suspect]
     Indication: MIGRAINE
     Dosage: 40 MG, 1X/DAY
     Dates: start: 20120609, end: 20120611
  6. SYNTHROID [Concomitant]
     Indication: THYROID DISORDER
     Dosage: 100 UG, 1X/DAY
  7. TOPIRAMATE [Concomitant]
     Indication: MIGRAINE
     Dosage: 25 MG, UNK FOR THE FIRST WEEK
  8. KLONOPIN [Concomitant]
     Dosage: 1 MG, DAILY

REACTIONS (1)
  - VOMITING [None]
